FAERS Safety Report 16384124 (Version 1)
Quarter: 2019Q2

REPORT INFORMATION
  Report Type: Spontaneous
  Country: FR (occurrence: FR)
  Receive Date: 20190603
  Receipt Date: 20190603
  Transmission Date: 20190711
  Serious: Yes (Hospitalization)
  Sender: FDA-Public Use
  Company Number: FR-PFIZER INC-2019226973

PATIENT
  Age: 59 Year
  Sex: Female
  Weight: 61 kg

DRUGS (5)
  1. LUMIRELAX [METHOCARBAMOL] [Concomitant]
     Active Substance: METHOCARBAMOL
     Indication: PAIN
     Dosage: UNK
     Route: 048
  2. LORAZEPAM. [Concomitant]
     Active Substance: LORAZEPAM
     Dosage: UNK
     Route: 048
  3. LEVOTHYROX [Concomitant]
     Active Substance: LEVOTHYROXINE
     Indication: HYPOTHYROIDISM
     Dosage: 0.5 DF, 1X/DAY
     Route: 048
  4. DAFLON [DIOSMIN;HESPERIDIN] [Concomitant]
     Indication: HAEMORRHOIDS
     Dosage: UNK
     Route: 048
     Dates: start: 20190316, end: 20190316
  5. BREXIN [PIROXICAM] [Suspect]
     Active Substance: PIROXICAM BETADEX
     Indication: PAIN
     Dosage: UNK
     Route: 048
     Dates: start: 20190304, end: 20190310

REACTIONS (5)
  - Pyrexia [Recovered/Resolved]
  - Arthralgia [Recovered/Resolved]
  - Rash macular [Recovered/Resolved]
  - General physical health deterioration [Recovered/Resolved]
  - Myalgia [Recovered/Resolved]

NARRATIVE: CASE EVENT DATE: 20190316
